FAERS Safety Report 5293818-7 (Version None)
Quarter: 2007Q2

REPORT INFORMATION
  Report Type: 
  Country: None (occurrence: None)
  Receive Date: 20070405
  Receipt Date: 20070322
  Transmission Date: 20071010
  Serious: Yes (Death)
  Sender: FDA-Public Use
  Company Number: POMP-10994

PATIENT
  Age: 3 Month
  Sex: Female
  Weight: 3.68 kg

DRUGS (1)
  1. MYOZYME [Suspect]
     Indication: GLYCOGEN STORAGE DISEASE TYPE II
     Dates: start: 20061101, end: 20070125

REACTIONS (1)
  - DISEASE PROGRESSION [None]
